FAERS Safety Report 17186844 (Version 1)
Quarter: 2019Q4

REPORT INFORMATION
  Report Type: Spontaneous
  Country: BR (occurrence: BR)
  Receive Date: 20191220
  Receipt Date: 20191220
  Transmission Date: 20200122
  Serious: Yes (Other)
  Sender: FDA-Public Use
  Company Number: BR-009507513-1911BRA006941

PATIENT
  Sex: Male
  Weight: 88 kg

DRUGS (2)
  1. JANUMET [Suspect]
     Active Substance: METFORMIN HYDROCHLORIDE\SITAGLIPTIN PHOSPHATE
     Indication: TYPE 2 DIABETES MELLITUS
     Dosage: 2 DOSAGE FORM, QD (2 TABLETS A DAY)
     Route: 048
     Dates: start: 2015
  2. DIAMICRON [Concomitant]
     Active Substance: GLICLAZIDE
     Indication: TYPE 2 DIABETES MELLITUS
     Dosage: 2 DOSAGE FORM, QD (2 TABLETS A DAY)
     Route: 048

REACTIONS (15)
  - Sciatic nerve injury [Recovering/Resolving]
  - Muscle spasms [Unknown]
  - Wrong technique in product usage process [Unknown]
  - Dysphagia [Unknown]
  - Fall [Recovered/Resolved]
  - Dysgeusia [Unknown]
  - Diabetic metabolic decompensation [Recovered/Resolved]
  - Regurgitation [Recovered/Resolved]
  - Visual impairment [Unknown]
  - Chest pain [Unknown]
  - Intentional product misuse [Unknown]
  - Gait disturbance [Unknown]
  - Hyperphagia [Unknown]
  - Dysphagia [Unknown]
  - Stress [Unknown]

NARRATIVE: CASE EVENT DATE: 2015
